FAERS Safety Report 13707682 (Version 2)
Quarter: 2017Q3

REPORT INFORMATION
  Report Type: Spontaneous
  Country: AR (occurrence: AR)
  Receive Date: 20170630
  Receipt Date: 20170705
  Transmission Date: 20171127
  Serious: Yes (Death, Hospitalization, Other)
  Sender: FDA-Public Use
  Company Number: AR-PFIZER INC-2017283016

PATIENT
  Age: 78 Year
  Sex: Male

DRUGS (1)
  1. XELJANZ [Suspect]
     Active Substance: TOFACITINIB CITRATE
     Indication: RHEUMATOID ARTHRITIS
     Dosage: 5 MG, EVERY 12 HOURS
     Dates: start: 20150120, end: 201511

REACTIONS (8)
  - Dyspnoea [Fatal]
  - General physical health deterioration [Fatal]
  - Cardiac failure [Fatal]
  - Pulmonary mass [Unknown]
  - Anaemia [Not Recovered/Not Resolved]
  - Weight decreased [Fatal]
  - Emphysema [Unknown]
  - Metaplasia [Unknown]

NARRATIVE: CASE EVENT DATE: 201506
